FAERS Safety Report 7993765-3 (Version None)
Quarter: 2011Q4

REPORT INFORMATION
  Report Type: 
  Country: None (occurrence: None)
  Receive Date: 20111220
  Receipt Date: 20111215
  Transmission Date: 20120403
  Serious: No
  Sender: FDA-Public Use
  Company Number: US-BIOGENIDEC-2011BI015252

PATIENT
  Sex: Female

DRUGS (2)
  1. TYSABRI [Suspect]
     Indication: MULTIPLE SCLEROSIS
     Route: 042
     Dates: start: 20110325, end: 20110325
  2. TYSABRI [Suspect]
     Route: 042
     Dates: start: 20111202

REACTIONS (7)
  - SENSORY LOSS [None]
  - MOTOR DYSFUNCTION [None]
  - FATIGUE [None]
  - COGNITIVE DISORDER [None]
  - GENERAL PHYSICAL HEALTH DETERIORATION [None]
  - MULTIPLE SCLEROSIS RELAPSE [None]
  - GAIT DISTURBANCE [None]
